FAERS Safety Report 25403745 (Version 2)
Quarter: 2025Q2

REPORT INFORMATION
  Report Type: Spontaneous
  Country: US (occurrence: US)
  Receive Date: 20250606
  Receipt Date: 20250619
  Transmission Date: 20250716
  Serious: No
  Sender: SANDOZ
  Company Number: US-002147023-NVSC2025US089258

PATIENT
  Sex: Female

DRUGS (3)
  1. KISQALI [Suspect]
     Active Substance: RIBOCICLIB SUCCINATE
     Indication: Breast cancer
     Route: 065
  2. LETROZOLE [Suspect]
     Active Substance: LETROZOLE
     Indication: Breast cancer
     Route: 065
  3. ZOMETA [Suspect]
     Active Substance: ZOLEDRONIC ACID
     Indication: Product used for unknown indication
     Route: 065

REACTIONS (3)
  - Pain in jaw [Not Recovered/Not Resolved]
  - Gingival pain [Not Recovered/Not Resolved]
  - Back pain [Not Recovered/Not Resolved]
